FAERS Safety Report 23844183 (Version 1)
Quarter: 2024Q2

REPORT INFORMATION
  Report Type: Report from Study
  Country: US (occurrence: US)
  Receive Date: 20240510
  Receipt Date: 20240510
  Transmission Date: 20240716
  Serious: Yes (Death)
  Sender: FDA-Public Use
  Company Number: US-MIRATI-MT2024PM06639

PATIENT
  Sex: Male

DRUGS (2)
  1. KRAZATI [Suspect]
     Active Substance: ADAGRASIB
     Indication: Colon cancer
     Dosage: 400 MG, BID
     Route: 048
     Dates: start: 20240330
  2. KRAZATI [Suspect]
     Active Substance: ADAGRASIB
     Dosage: 2 IN THE MORNING, 3 IN THE EVENING
     Route: 048
     Dates: start: 20240418

REACTIONS (1)
  - Death [Fatal]
